FAERS Safety Report 7044827-9 (Version None)
Quarter: 2010Q4

REPORT INFORMATION
  Report Type: 
  Country: None (occurrence: None)
  Receive Date: 20101014
  Receipt Date: 20101005
  Transmission Date: 20110411
  Serious: Yes (Hospitalization, Other)
  Sender: FDA-Public Use
  Company Number: US-JNJFOC-20101002003

PATIENT
  Sex: Female
  Weight: 54.43 kg

DRUGS (8)
  1. UNSPECIFIED FENTANYL [Suspect]
     Indication: CANCER PAIN
     Route: 062
  2. UNSPECIFIED FENTANYL [Suspect]
     Dosage: 2 OF 25 UG/HR
     Route: 062
  3. UNSPECIFIED FENTANYL [Suspect]
     Dosage: 2 PATCHES OF 12.5 UG/HR
     Route: 062
  4. UNSPECIFIED FENTANYL [Suspect]
     Dosage: ONE 25 UG/HR AND 12.5 UG/HR
     Route: 062
  5. UNSPECIFIED FENTANYL [Suspect]
     Route: 062
  6. SANDOZ FENTANYL TRANSDERMAL SYSTEM [Suspect]
     Indication: CANCER PAIN
     Dosage: NDC # 0781-7242-55
     Route: 062
  7. SANDOZ FENTANYL TRANSDERMAL SYSTEM [Suspect]
     Route: 062
  8. UNSPECIFIED FENTANYL [Suspect]
     Route: 062

REACTIONS (5)
  - DEHYDRATION [None]
  - NAUSEA [None]
  - PAIN [None]
  - VOMITING [None]
  - WEIGHT DECREASED [None]
